FAERS Safety Report 9244500 (Version 1)
Quarter: 2013Q2

REPORT INFORMATION
  Report Type: Spontaneous
  Country: US (occurrence: US)
  Receive Date: 20130422
  Receipt Date: 20130422
  Transmission Date: 20140414
  Serious: No
  Sender: FDA-Public Use
  Company Number: US-ROXANE LABORATORIES, INC.-2013-RO-00484RO

PATIENT
  Age: 55 Year
  Sex: Female

DRUGS (4)
  1. AZATHIOPRINE [Suspect]
     Indication: DRUG DEPENDENCE
     Dosage: 50 MG
     Route: 048
  2. METHYLPREDNISOLONE [Concomitant]
     Indication: HASHIMOTO^S ENCEPHALOPATHY
     Dosage: 4 MG
  3. LEVOTHYROXINE [Concomitant]
     Indication: AUTOIMMUNE THYROIDITIS
  4. INDERAL LA [Concomitant]
     Indication: MIGRAINE

REACTIONS (2)
  - Dizziness [Recovered/Resolved]
  - Feeling abnormal [Recovered/Resolved]
